FAERS Safety Report 15465306 (Version 1)
Quarter: 2018Q4

REPORT INFORMATION
  Report Type: Report from Study
  Country: US (occurrence: US)
  Receive Date: 20181004
  Receipt Date: 20181004
  Transmission Date: 20190204
  Serious: Yes (Other)
  Sender: FDA-Public Use
  Company Number: US-BAYER-2018-173069

PATIENT
  Age: 67 Year
  Sex: Male

DRUGS (3)
  1. STIVARGA [Suspect]
     Active Substance: REGORAFENIB
     Indication: COLON CANCER
     Dosage: 120MG (3-40MG TABLETS) WITH LOW FAT MEAL
     Route: 048
     Dates: start: 20180919
  2. STIVARGA [Suspect]
     Active Substance: REGORAFENIB
     Indication: COLON CANCER
     Dosage: 80 MG DAILY
     Dates: start: 20180909
  3. STIVARGA [Suspect]
     Active Substance: REGORAFENIB
     Indication: COLON CANCER
     Dosage: 160MG DAILY
     Route: 048
     Dates: start: 20180909, end: 20180916

REACTIONS (7)
  - Neuropathy peripheral [None]
  - Decreased appetite [None]
  - Nasopharyngitis [None]
  - Vertebral column mass [None]
  - Middle insomnia [None]
  - Fatigue [None]
  - Off label use [None]

NARRATIVE: CASE EVENT DATE: 201809
